FAERS Safety Report 17000297 (Version 1)
Quarter: 2019Q4

REPORT INFORMATION
  Report Type: Spontaneous
  Country: CA (occurrence: CA)
  Receive Date: 20191106
  Receipt Date: 20191106
  Transmission Date: 20200122
  Serious: Yes (Life-Threatening)
  Sender: FDA-Public Use
  Company Number: CA-PFIZER INC-2019475609

PATIENT
  Age: 77 Year
  Sex: Male

DRUGS (8)
  1. DISOPYRAMIDE PHOSPHATE. [Suspect]
     Active Substance: DISOPYRAMIDE PHOSPHATE
     Dosage: UNK, 2X/DAY
     Route: 048
  2. RYTHMODAN [DISOPYRAMIDE PHOSPHATE] [Suspect]
     Active Substance: DISOPYRAMIDE PHOSPHATE
     Dosage: 200 MG, 1X/DAY
     Route: 048
  3. RYTHMODAN [DISOPYRAMIDE PHOSPHATE] [Suspect]
     Active Substance: DISOPYRAMIDE PHOSPHATE
     Dosage: 300 MG, 1X/DAY
     Route: 048
  4. DOCETAXEL. [Suspect]
     Active Substance: DOCETAXEL
     Indication: LUNG NEOPLASM MALIGNANT
     Dosage: UNK, EVERY 3 WEEKS
     Route: 042
  5. DOCETAXEL. [Suspect]
     Active Substance: DOCETAXEL
     Dosage: UNK, EVERY 3 WEEKS
     Route: 042
  6. ELIGARD [Suspect]
     Active Substance: LEUPROLIDE ACETATE
     Indication: PROSTATE CANCER
     Dosage: UNK
     Route: 058
  7. DISOPYRAMIDE PHOSPHATE. [Suspect]
     Active Substance: DISOPYRAMIDE PHOSPHATE
     Indication: CARDIAC DISORDER
     Dosage: UNK
     Route: 048
  8. PREDNISONE. [Concomitant]
     Active Substance: PREDNISONE
     Dosage: 5 MG, 2X/DAY
     Route: 065

REACTIONS (5)
  - Blood pressure abnormal [Not Recovered/Not Resolved]
  - Heart rate irregular [Not Recovered/Not Resolved]
  - Neoplasm progression [Not Recovered/Not Resolved]
  - Blood pressure increased [Not Recovered/Not Resolved]
  - Heart rate increased [Not Recovered/Not Resolved]
